FAERS Safety Report 11564941 (Version 2)
Quarter: 2017Q1

REPORT INFORMATION
  Report Type: Report from Study
  Country: US (occurrence: US)
  Receive Date: 20150928
  Receipt Date: 20170201
  Transmission Date: 20170428
  Serious: Yes (Other)
  Sender: FDA-Public Use
  Company Number: US-EXELIXIS-CABO-14004938

PATIENT
  Age: 53 Year
  Sex: Female

DRUGS (13)
  1. ADVIL [Concomitant]
     Active Substance: IBUPROFEN
  2. AYR SPR 0.65% [Concomitant]
  3. ZOMETA [Concomitant]
     Active Substance: ZOLEDRONIC ACID
  4. COMETRIQ [Suspect]
     Active Substance: CABOZANTINIB S-MALATE
     Dosage: 120 MG, QD
     Route: 048
     Dates: start: 20141212, end: 20150128
  5. COMETRIQ [Suspect]
     Active Substance: CABOZANTINIB S-MALATE
     Dosage: 120 MG, QOD
     Route: 048
     Dates: start: 20150129, end: 2015
  6. COMETRIQ [Suspect]
     Active Substance: CABOZANTINIB S-MALATE
     Dosage: ALTERNATE 120 MG  AND  100 MG QOD
     Route: 048
     Dates: start: 20150611
  7. DIURETIC [Concomitant]
     Active Substance: UNSPECIFIED INGREDIENT
  8. TYLENOL [Concomitant]
     Active Substance: ACETAMINOPHEN
  9. COMETRIQ [Suspect]
     Active Substance: CABOZANTINIB S-MALATE
     Indication: THYROID CANCER
     Dosage: 100 MG, QD
     Route: 048
     Dates: start: 20141025, end: 20141211
  10. PERCOCET [Concomitant]
     Active Substance: ACETAMINOPHEN\OXYCODONE HYDROCHLORIDE
  11. COMETRIQ [Suspect]
     Active Substance: CABOZANTINIB S-MALATE
     Dosage: 100 MG, QD
     Route: 048
     Dates: start: 201604, end: 201605
  12. MULTIVITAMIN [Concomitant]
     Active Substance: VITAMINS
  13. LISINOPRIL. [Concomitant]
     Active Substance: LISINOPRIL

REACTIONS (27)
  - Nasopharyngitis [Unknown]
  - Pain [Unknown]
  - Oropharyngeal pain [Unknown]
  - Vomiting [Unknown]
  - Deep vein thrombosis [Unknown]
  - Cough [Unknown]
  - Pain in extremity [Not Recovered/Not Resolved]
  - Joint swelling [Unknown]
  - Feeling abnormal [Unknown]
  - Blood pressure increased [Unknown]
  - Glossodynia [Unknown]
  - Hair colour changes [Unknown]
  - Weight decreased [Unknown]
  - Dizziness [Unknown]
  - Limb injury [Not Recovered/Not Resolved]
  - Dysphonia [Unknown]
  - Diarrhoea [Not Recovered/Not Resolved]
  - Impaired healing [Unknown]
  - Abdominal pain upper [Unknown]
  - Hypophagia [Unknown]
  - Ocular hyperaemia [Unknown]
  - Peripheral swelling [Unknown]
  - Nausea [Unknown]
  - Eye pain [Unknown]
  - Gingival disorder [Unknown]
  - Nasal dryness [Unknown]
  - Bone pain [Not Recovered/Not Resolved]

NARRATIVE: CASE EVENT DATE: 2014
